FAERS Safety Report 7826899-4 (Version None)
Quarter: 2011Q4

REPORT INFORMATION
  Report Type: 
  Country: None (occurrence: None)
  Receive Date: 20111019
  Receipt Date: 20111019
  Transmission Date: 20120403
  Serious: Yes (Disabling)
  Sender: FDA-Public Use
  Company Number: None

PATIENT
  Sex: Female
  Weight: 67.1324 kg

DRUGS (1)
  1. ETHAMBUTOL HYDROCHLORIDE [Suspect]
     Indication: MYCOBACTERIUM AVIUM COMPLEX INFECTION
     Dosage: 400MG 4 X DAILY
     Dates: start: 20100401, end: 20100901

REACTIONS (1)
  - NEUROPATHY PERIPHERAL [None]
